FAERS Safety Report 9994944 (Version 2)
Quarter: 2014Q3

REPORT INFORMATION
  Report Type: Spontaneous
  Country: US (occurrence: US)
  Receive Date: 20140311
  Receipt Date: 20140909
  Transmission Date: 20150326
  Serious: Yes (Hospitalization, Other)
  Sender: FDA-Public Use
  Company Number: US-BAYER-2014-036296

PATIENT
  Age: 32 Year
  Sex: Female
  Weight: 58.96 kg

DRUGS (5)
  1. PHENERGAN [PROMETHAZINE] [Concomitant]
     Dosage: 12.5 MG, UNK
  2. LOMOTIL [DIPHENOXYLATE HYDROCHLORIDE] [Concomitant]
     Indication: DIARRHOEA
  3. DEMEROL [Concomitant]
     Active Substance: MEPERIDINE HYDROCHLORIDE
     Dosage: 12.5 MG, UNK
  4. OCELLA [Suspect]
     Active Substance: DROSPIRENONE\ETHINYL ESTRADIOL
     Dosage: UNK
     Dates: start: 1996, end: 2003
  5. NORMAL SALINE [Concomitant]
     Active Substance: SODIUM CHLORIDE

REACTIONS (8)
  - General physical health deterioration [None]
  - Thrombosis [None]
  - Anxiety [None]
  - Abdominal pain [None]
  - Emotional distress [None]
  - Pain [None]
  - Mesenteric vein thrombosis [None]
  - Injury [None]

NARRATIVE: CASE EVENT DATE: 20030922
